FAERS Safety Report 10394762 (Version 1)
Quarter: 2014Q3

REPORT INFORMATION
  Report Type: Spontaneous
  Country: US (occurrence: US)
  Receive Date: 20140820
  Receipt Date: 20140820
  Transmission Date: 20150326
  Serious: No
  Sender: FDA-Public Use
  Company Number: US-BIOGENIDEC-2014BI082505

PATIENT
  Age: 54 Year
  Sex: Female

DRUGS (2)
  1. TYLENOL [Concomitant]
     Active Substance: ACETAMINOPHEN
  2. TYSABRI [Suspect]
     Active Substance: NATALIZUMAB
     Indication: MULTIPLE SCLEROSIS
     Route: 042
     Dates: start: 20140604

REACTIONS (12)
  - Erythema [Unknown]
  - Hunger [Recovered/Resolved]
  - Vomiting [Recovered/Resolved]
  - Chills [Unknown]
  - Dyspepsia [Unknown]
  - Throat tightness [Unknown]
  - Nausea [Recovered/Resolved]
  - Abdominal pain [Unknown]
  - Feeling hot [Recovered/Resolved]
  - Tremor [Unknown]
  - Odynophagia [Unknown]
  - Flushing [Recovered/Resolved]

NARRATIVE: CASE EVENT DATE: 2014
